FAERS Safety Report 7772639-7 (Version None)
Quarter: 2011Q3

REPORT INFORMATION
  Report Type: 
  Country: None (occurrence: None)
  Receive Date: 20110922
  Receipt Date: 20110329
  Transmission Date: 20111222
  Serious: No
  Sender: FDA-Public Use
  Company Number: US-ASTRAZENECA-2011SE17898

PATIENT
  Age: 79 Year
  Sex: Male

DRUGS (9)
  1. FIBER [Concomitant]
  2. SEROQUEL [Suspect]
     Dosage: 200 MG IN THE MORNING AND 300 MG AT NIGHT
     Route: 048
  3. FISH OIL [Concomitant]
  4. GLUCOSAMINE SULFATE [Concomitant]
  5. STOOL SOFTENER [Concomitant]
  6. INVEGA [Concomitant]
  7. ASPIRIN [Concomitant]
  8. SELENIUM [Concomitant]
  9. LITHIUM [Concomitant]

REACTIONS (4)
  - AGGRESSION [None]
  - EXERCISE LACK OF [None]
  - WEIGHT INCREASED [None]
  - AGITATION [None]
